FAERS Safety Report 14283917 (Version 1)
Quarter: 2017Q4

REPORT INFORMATION
  Report Type: Report from Study
  Country: US (occurrence: US)
  Receive Date: 20171213
  Receipt Date: 20171213
  Transmission Date: 20180321
  Serious: Yes (Other)
  Sender: FDA-Public Use
  Company Number: US-ROCHE-2037654

PATIENT
  Sex: Female

DRUGS (1)
  1. LUCENTIS [Suspect]
     Active Substance: RANIBIZUMAB
     Indication: RETINAL VEIN OCCLUSION
     Dosage: FOR THREE MONTHS THEN AS NEEDED.
     Route: 050

REACTIONS (2)
  - Thrombosis [Not Recovered/Not Resolved]
  - Eye swelling [Not Recovered/Not Resolved]
